FAERS Safety Report 23266188 (Version 1)
Quarter: 2023Q4

REPORT INFORMATION
  Report Type: Spontaneous
  Country: MX (occurrence: None)
  Receive Date: 20231206
  Receipt Date: 20231206
  Transmission Date: 20240109
  Serious: Yes (Other)
  Sender: FDA-Public Use
  Company Number: MX-ROCHE-3469455

PATIENT
  Age: 39 Year
  Sex: Female
  Weight: 60 kg

DRUGS (4)
  1. RITUXIMAB [Suspect]
     Active Substance: RITUXIMAB
     Indication: Neuromyelitis optica spectrum disorder
     Dosage: IN THE FIRST YEAR
     Route: 065
     Dates: start: 201610, end: 20231109
  2. RITUXIMAB [Suspect]
     Active Substance: RITUXIMAB
     Dosage: IN THE SECOND YEAR
     Route: 065
     Dates: start: 201610, end: 20231109
  3. RITUXIMAB [Suspect]
     Active Substance: RITUXIMAB
     Dosage: FROM THE THIRD YEAR
     Route: 065
     Dates: start: 201610, end: 20231109
  4. METHYLPREDNISOLONE [Concomitant]
     Active Substance: METHYLPREDNISOLONE
     Dosage: 4 PULSES

REACTIONS (4)
  - Off label use [Unknown]
  - COVID-19 pneumonia [Recovered/Resolved with Sequelae]
  - Tachycardia [Recovering/Resolving]
  - Arrhythmia [Recovering/Resolving]

NARRATIVE: CASE EVENT DATE: 20161001
